FAERS Safety Report 6681630-3 (Version None)
Quarter: 2010Q2

REPORT INFORMATION
  Report Type: 
  Country: None (occurrence: None)
  Receive Date: 20100414
  Receipt Date: 20100402
  Transmission Date: 20101027
  Serious: Yes (Other)
  Sender: FDA-Public Use
  Company Number: US-ELI_LILLY_AND_COMPANY-US201004002385

PATIENT
  Sex: Female

DRUGS (1)
  1. CYMBALTA [Suspect]
     Indication: PANIC DISORDER
     Dosage: 60 MG, UNK

REACTIONS (5)
  - DRUG WITHDRAWAL SYNDROME [None]
  - HALLUCINATION [None]
  - MENTAL STATUS CHANGES [None]
  - MUCOSAL INFLAMMATION [None]
  - NEUTROPENIA [None]
